FAERS Safety Report 4736580-6 (Version None)
Quarter: 2005Q3

REPORT INFORMATION
  Report Type: 
  Country: None (occurrence: None)
  Receive Date: 20050803
  Receipt Date: 20050722
  Transmission Date: 20060218
  Serious: Yes (Other)
  Sender: FDA-Public Use
  Company Number: 2005105378

PATIENT
  Age: 16 Year
  Sex: Male

DRUGS (1)
  1. DRAMAMINE [Suspect]
     Indication: ACCIDENTAL EXPOSURE
     Dosage: 8 TABLETS ONCE, ORAL
     Route: 048
     Dates: start: 20050722, end: 20050722

REACTIONS (2)
  - ACCIDENTAL EXPOSURE [None]
  - MALAISE [None]
